FAERS Safety Report 19866475 (Version 4)
Quarter: 2022Q1

REPORT INFORMATION
  Report Type: Other
  Country: DE (occurrence: None)
  Receive Date: 20210922
  Receipt Date: 20220213
  Transmission Date: 20220423
  Serious: Yes (Hospitalization, Other)
  Sender: FDA-Public Use
  Company Number: DE-ROCHE-2914332

PATIENT
  Age: 67 Year
  Sex: Male

DRUGS (10)
  1. RITUXIMAB [Suspect]
     Active Substance: RITUXIMAB
     Indication: Neuromyelitis optica spectrum disorder
     Dosage: SUBSEQUENT DOSES WERE ADMINISTERED ON 18/AUG/2021
     Route: 042
     Dates: start: 20210803
  2. RITUXIMAB [Suspect]
     Active Substance: RITUXIMAB
     Route: 042
     Dates: start: 20210818
  3. ESOMEPRAZOLE [Concomitant]
     Active Substance: ESOMEPRAZOLE
  4. CHOLECALCIFEROL [Concomitant]
     Active Substance: CHOLECALCIFEROL
     Dosage: 20000 UNIT NOT REPORTED
  5. ENOXAPARIN SODIUM [Concomitant]
     Active Substance: ENOXAPARIN SODIUM
  6. CLONIDINE [Concomitant]
     Active Substance: CLONIDINE
  7. PREDNISOLONE [Concomitant]
     Active Substance: PREDNISOLONE
  8. PALEXIA [Concomitant]
     Active Substance: TAPENTADOL HYDROCHLORIDE
  9. MIRTAZAPINE [Concomitant]
     Active Substance: MIRTAZAPINE
  10. LACTULOSE [Concomitant]
     Active Substance: LACTULOSE

REACTIONS (4)
  - Pneumonia [Recovered/Resolved]
  - Off label use [Unknown]
  - Pseudomonas infection [Not Recovered/Not Resolved]
  - Depressed mood [Not Recovered/Not Resolved]

NARRATIVE: CASE EVENT DATE: 20210803
